FAERS Safety Report 24751716 (Version 5)
Quarter: 2025Q2

REPORT INFORMATION
  Report Type: Spontaneous
  Country: US (occurrence: US)
  Receive Date: 20241219
  Receipt Date: 20250403
  Transmission Date: 20250717
  Serious: Yes (Hospitalization)
  Sender: KARYOPHARM THERAPEUTICS
  Company Number: US-KARYOPHARM-2024KPT001905

PATIENT

DRUGS (22)
  1. XPOVIO [Suspect]
     Active Substance: SELINEXOR
     Indication: Brain neoplasm malignant
     Route: 048
     Dates: start: 2025
  2. XPOVIO [Suspect]
     Active Substance: SELINEXOR
     Route: 048
  3. XPOVIO [Suspect]
     Active Substance: SELINEXOR
     Route: 048
     Dates: start: 20250108, end: 2025
  4. XPOVIO [Suspect]
     Active Substance: SELINEXOR
     Route: 048
     Dates: start: 20250307, end: 202503
  5. APTIOM [Concomitant]
     Active Substance: ESLICARBAZEPINE ACETATE
  6. ATIVAN [Concomitant]
     Active Substance: LORAZEPAM
  7. BACTRIM [Concomitant]
     Active Substance: SULFAMETHOXAZOLE\TRIMETHOPRIM
  8. CLARINEX [Concomitant]
     Active Substance: DESLORATADINE
  9. DEXAMETHASONE [Concomitant]
     Active Substance: DEXAMETHASONE
  10. DOXAZOSIN [Concomitant]
     Active Substance: DOXAZOSIN MESYLATE
  11. FUROSEMIDE [Concomitant]
     Active Substance: FUROSEMIDE
  12. KEPPRA [Concomitant]
     Active Substance: LEVETIRACETAM
  13. LACOSAMIDE [Concomitant]
     Active Substance: LACOSAMIDE
  14. LOSARTAN [Concomitant]
     Active Substance: LOSARTAN
  15. MIRABEGRON [Concomitant]
     Active Substance: MIRABEGRON
  16. MONTELUKAST [Concomitant]
     Active Substance: MONTELUKAST
  17. ONDANSETRON [Concomitant]
     Active Substance: ONDANSETRON
  18. PANTOPRAZOLE [Concomitant]
     Active Substance: PANTOPRAZOLE
  19. TEMOZOLOMIDE [Concomitant]
     Active Substance: TEMOZOLOMIDE
  20. VIMPAT [Concomitant]
     Active Substance: LACOSAMIDE
  21. LASIX [Concomitant]
     Active Substance: FUROSEMIDE
  22. ZOFRAN [Concomitant]
     Active Substance: ONDANSETRON HYDROCHLORIDE

REACTIONS (5)
  - Dehydration [Unknown]
  - Asthenia [Unknown]
  - Fatigue [Unknown]
  - Platelet count decreased [Not Recovered/Not Resolved]
  - Off label use [Unknown]

NARRATIVE: CASE EVENT DATE: 20250212
